FAERS Safety Report 8966606 (Version 1)
Quarter: 2012Q4

REPORT INFORMATION
  Report Type: 
  Country: US (occurrence: US)
  Receive Date: 20121214
  Receipt Date: 20121214
  Transmission Date: 20130627
  Serious: No
  Sender: FDA-Public Use
  Company Number: US-ASTRAZENECA-2012SE91595

PATIENT
  Age: 85 Year
  Sex: Male
  Weight: 90.7 kg

DRUGS (10)
  1. SYMBICORT PMDI [Suspect]
     Indication: CHRONIC OBSTRUCTIVE PULMONARY DISEASE
     Dosage: 160/ 4.5 2 PUFFS BID
     Route: 055
     Dates: start: 2012, end: 2012
  2. SYMBICORT PMDI [Suspect]
     Indication: CHRONIC OBSTRUCTIVE PULMONARY DISEASE
     Dosage: 80/4.5 2 PUFFS BID
     Route: 055
     Dates: start: 2012, end: 2012
  3. WARFARIN [Concomitant]
     Indication: ATRIAL FIBRILLATION
  4. ASA [Concomitant]
     Indication: ATRIAL FIBRILLATION
  5. ALBUTEROL NEBULISER [Concomitant]
     Indication: DYSPNOEA
  6. DILTIAZEM [Concomitant]
     Indication: ATRIAL FIBRILLATION
  7. LASIX [Concomitant]
     Indication: ATRIAL FIBRILLATION
  8. METOPROLOL [Concomitant]
     Indication: ATRIAL FIBRILLATION
  9. METOLOZONE [Concomitant]
     Indication: CARDIAC DISORDER
  10. MULTIVITAMIN [Concomitant]

REACTIONS (3)
  - Nervousness [Unknown]
  - Tremor [Recovering/Resolving]
  - Off label use [Unknown]
